FAERS Safety Report 6530797-6 (Version None)
Quarter: 2010Q1

REPORT INFORMATION
  Report Type: 
  Country: None (occurrence: None)
  Receive Date: 20100108
  Receipt Date: 20090218
  Transmission Date: 20100710
  Serious: No
  Sender: FDA-Public Use
  Company Number: A0769330A

PATIENT
  Age: 60 Year
  Sex: Male

DRUGS (1)
  1. LOVAZA [Suspect]
     Dosage: 2G TWICE PER DAY
     Route: 048

REACTIONS (1)
  - RASH [None]
